FAERS Safety Report 4375614-8 (Version None)
Quarter: 2004Q2

REPORT INFORMATION
  Report Type: 
  Country: None (occurrence: None)
  Receive Date: 20040607
  Receipt Date: 20040520
  Transmission Date: 20050107
  Serious: Yes (Hospitalization)
  Sender: FDA-Public Use
  Company Number: 167026

PATIENT
  Age: 61 Year
  Sex: Female
  Weight: 48.0813 kg

DRUGS (2)
  1. AVONEX [Suspect]
     Indication: MULTIPLE SCLEROSIS
     Dosage: 30 MCG QW IM
     Dates: start: 20000101, end: 20031001
  2. AVONEX [Suspect]
     Indication: MULTIPLE SCLEROSIS
     Dosage: 30 MCG QW IM
     Dates: start: 20031001

REACTIONS (9)
  - ANXIETY [None]
  - DEHYDRATION [None]
  - EAR DISORDER [None]
  - HYPERAESTHESIA [None]
  - INFLUENZA LIKE ILLNESS [None]
  - MARKEDLY REDUCED DIETARY INTAKE [None]
  - MULTIPLE SCLEROSIS [None]
  - OSTEOPENIA [None]
  - VERTIGO POSITIONAL [None]
